FAERS Safety Report 5612007-7 (Version None)
Quarter: 2008Q1

REPORT INFORMATION
  Report Type: 
  Country: None (occurrence: None)
  Receive Date: 20080128
  Receipt Date: 20080108
  Transmission Date: 20080703
  Serious: Yes (Death)
  Sender: FDA-Public Use
  Company Number: 2008003445

PATIENT
  Age: 57 Year
  Sex: Female

DRUGS (11)
  1. FRAGMIN [Suspect]
     Indication: THROMBOSIS PROPHYLAXIS
     Dosage: 5000 IU OD EVERYDAY TDD: 5000 IU
     Dates: start: 20070814
  2. LEVOFLOXACIN [Concomitant]
  3. PANTOPRAZOLE SODIUM [Concomitant]
  4. TRAMADOL HCL [Concomitant]
  5. COBADEX (DIMETHICONE 350, HYDROCORTISONE) [Concomitant]
  6. POTKLOR (POTASSIUM CHLORIDE) [Concomitant]
  7. LEVOSALBUTAMOL (LEVOSALBUTAMOL) [Concomitant]
  8. BUDECORT ASTRA (BUDESONIDE) [Concomitant]
  9. HUMAN MIXTARD (INSULIN HUMAN, INSULIN HUMAN INJECTION, ISOPHANE) [Concomitant]
  10. CEFEPIME [Concomitant]
  11. METROGYL (METRONIDAZOLE) [Concomitant]

REACTIONS (3)
  - CARDIO-RESPIRATORY ARREST [None]
  - HAEMOPTYSIS [None]
  - HAEMORRHAGE [None]
